FAERS Safety Report 7772923-7 (Version None)
Quarter: 2011Q3

REPORT INFORMATION
  Report Type: 
  Country: None (occurrence: None)
  Receive Date: 20110922
  Receipt Date: 20100809
  Transmission Date: 20111222
  Serious: No
  Sender: FDA-Public Use
  Company Number: US-ASTRAZENECA-2010SE33871

PATIENT
  Age: 42 Year
  Sex: Female
  Weight: 89.4 kg

DRUGS (4)
  1. SEROQUEL XR [Suspect]
     Indication: BIPOLAR DISORDER
     Route: 048
     Dates: start: 20080101
  2. METFORMIN HCL [Suspect]
     Route: 065
  3. CELEXA [Concomitant]
  4. SIMVASTATIN [Concomitant]

REACTIONS (7)
  - TYPE 2 DIABETES MELLITUS [None]
  - ASTHENOPIA [None]
  - TYPE 1 DIABETES MELLITUS [None]
  - FLATULENCE [None]
  - SINUS DISORDER [None]
  - DRUG DOSE OMISSION [None]
  - DYSPEPSIA [None]
